FAERS Safety Report 23818365 (Version 1)
Quarter: 2024Q2

REPORT INFORMATION
  Report Type: Spontaneous
  Country: US (occurrence: US)
  Receive Date: 20240506
  Receipt Date: 20240506
  Transmission Date: 20240715
  Serious: No
  Sender: FDA-Public Use
  Company Number: US-UCBSA-2023042108

PATIENT
  Sex: Female

DRUGS (1)
  1. CIMZIA [Suspect]
     Active Substance: CERTOLIZUMAB PEGOL
     Indication: Psoriasis
     Dosage: UNK
     Dates: start: 20230725

REACTIONS (6)
  - Injection site discomfort [Unknown]
  - Injection site pain [Unknown]
  - Hypoaesthesia [Unknown]
  - Syringe issue [Unknown]
  - Device difficult to use [Unknown]
  - Drug ineffective [Unknown]
